FAERS Safety Report 5366729-6 (Version None)
Quarter: 2007Q2

REPORT INFORMATION
  Report Type: 
  Country: None (occurrence: None)
  Receive Date: 20070622
  Receipt Date: 20060915
  Transmission Date: 20071010
  Serious: No
  Sender: FDA-Public Use
  Company Number: US-ASTRAZENECA-2006UW18128

PATIENT
  Age: 82 Year
  Sex: Male
  Weight: 72.6 kg

DRUGS (2)
  1. RHINOCORT [Suspect]
     Indication: MULTIPLE ALLERGIES
     Route: 045
     Dates: start: 20060901
  2. SINGULAIR [Concomitant]

REACTIONS (1)
  - HEART RATE IRREGULAR [None]
